FAERS Safety Report 23845430 (Version 1)
Quarter: 2024Q2

REPORT INFORMATION
  Report Type: Spontaneous
  Country: CA (occurrence: CA)
  Receive Date: 20240511
  Receipt Date: 20240511
  Transmission Date: 20240715
  Serious: Yes (Other)
  Sender: FDA-Public Use
  Company Number: CA-TEVA-VS-3195466

PATIENT
  Age: 3 Year
  Sex: Male

DRUGS (1)
  1. CEPHALEXIN [Suspect]
     Active Substance: CEPHALEXIN
     Indication: Influenza
     Dosage: 250MG/5ML
     Route: 065
     Dates: start: 20240427

REACTIONS (5)
  - Hallucination, visual [Recovered/Resolved]
  - Diplopia [Recovered/Resolved]
  - Panic reaction [Recovered/Resolved]
  - Pyrexia [Recovered/Resolved]
  - Fatigue [Unknown]

NARRATIVE: CASE EVENT DATE: 20240427
